FAERS Safety Report 10154782 (Version 2)
Quarter: 2014Q2

REPORT INFORMATION
  Report Type: Spontaneous
  Country: US (occurrence: None)
  Receive Date: 20140502
  Receipt Date: 20140519
  Transmission Date: 20141212
  Serious: Yes (Death)
  Sender: FDA-Public Use
  Company Number: 2014P1003506

PATIENT
  Age: 88 Year
  Sex: Male

DRUGS (1)
  1. MYORISAN [Suspect]
     Indication: PITYRIASIS RUBRA PILARIS
     Route: 048
     Dates: start: 20140127

REACTIONS (2)
  - Death [None]
  - Prostate cancer metastatic [None]
